FAERS Safety Report 16011452 (Version 2)
Quarter: 2019Q1

REPORT INFORMATION
  Report Type: Spontaneous
  Country: ES (occurrence: ES)
  Receive Date: 20190227
  Receipt Date: 20190301
  Transmission Date: 20190418
  Serious: Yes (Other)
  Sender: FDA-Public Use
  Company Number: PHHY2019ES041389

PATIENT
  Age: 39 Year
  Sex: Female

DRUGS (2)
  1. TRAMETINIB [Suspect]
     Active Substance: TRAMETINIB
     Indication: METASTASES TO CENTRAL NERVOUS SYSTEM
     Dosage: UNK
     Route: 065
     Dates: start: 201605
  2. DABRAFENIB [Suspect]
     Active Substance: DABRAFENIB
     Indication: METASTASES TO CENTRAL NERVOUS SYSTEM
     Dosage: UNK
     Route: 065
     Dates: start: 201605

REACTIONS (9)
  - Serous retinal detachment [Recovering/Resolving]
  - Iris adhesions [Recovering/Resolving]
  - Visual acuity reduced [Recovering/Resolving]
  - Cyclitic membrane [Recovering/Resolving]
  - Uveitis [Recovering/Resolving]
  - Vitritis [Recovering/Resolving]
  - Product use in unapproved indication [Unknown]
  - Koeppe nodules [Recovering/Resolving]
  - Subretinal fibrosis [Recovering/Resolving]

NARRATIVE: CASE EVENT DATE: 201607
